FAERS Safety Report 17743325 (Version 2)
Quarter: 2020Q2

REPORT INFORMATION
  Report Type: Spontaneous
  Country: BE (occurrence: BE)
  Receive Date: 20200504
  Receipt Date: 20200521
  Transmission Date: 20200714
  Serious: Yes (Death, Other)
  Sender: FDA-Public Use
  Company Number: NVSC2020BE120617

PATIENT
  Sex: Male
  Weight: 8 kg

DRUGS (1)
  1. TACROLIMUS. [Suspect]
     Active Substance: TACROLIMUS
     Indication: LIVER TRANSPLANT
     Dosage: UNK UNK, BID
     Route: 048
     Dates: start: 20130920, end: 20130920

REACTIONS (3)
  - Multiple organ dysfunction syndrome [Fatal]
  - Cardiovascular insufficiency [Fatal]
  - Respiratory failure [Fatal]
